FAERS Safety Report 10591810 (Version 2)
Quarter: 2014Q4

REPORT INFORMATION
  Report Type: Spontaneous
  Country: JP (occurrence: JP)
  Receive Date: 20141118
  Receipt Date: 20141218
  Transmission Date: 20150529
  Serious: Yes (Other)
  Sender: FDA-Public Use
  Company Number: JP-MYLANLABS-2014M1010968

PATIENT
  Age: 69 Year
  Sex: Male

DRUGS (2)
  1. CISPLATIN. [Suspect]
     Active Substance: CISPLATIN
     Indication: MESOTHELIOMA MALIGNANT
     Dosage: 75 MG/M2; EVERY 21 DAYS FOR 5 CYCLES
     Route: 065
  2. PEMETREXED [Suspect]
     Active Substance: PEMETREXED
     Indication: MESOTHELIOMA MALIGNANT
     Dosage: 500MG/M2, EVERY 21 DAYS FOR 5 CYCLES WITH CISPLATIN
     Route: 065

REACTIONS (2)
  - Neutropenia [Unknown]
  - Blood creatine increased [Recovered/Resolved]
